FAERS Safety Report 20846757 (Version 1)
Quarter: 2022Q2

REPORT INFORMATION
  Report Type: Other
  Country: US (occurrence: None)
  Receive Date: 20220519
  Receipt Date: 20220519
  Transmission Date: 20220720
  Serious: Yes (Other)
  Sender: FDA-Public Use
  Company Number: US-ROCHE-3096328

PATIENT
  Age: 65 Year
  Sex: Female
  Weight: 91.708 kg

DRUGS (9)
  1. OCREVUS [Suspect]
     Active Substance: OCRELIZUMAB
     Indication: Relapsing multiple sclerosis
     Dosage: INFUSE 600 MG EVERY 6 MONTHS
     Route: 042
     Dates: start: 20190821
  2. OCREVUS [Suspect]
     Active Substance: OCRELIZUMAB
     Indication: Relapsing multiple sclerosis
  3. AMLODIPINE [Concomitant]
     Active Substance: AMLODIPINE BESYLATE
  4. VITAMIN D3 [Concomitant]
     Active Substance: CHOLECALCIFEROL
  5. FERROUS SULFATE [Concomitant]
     Active Substance: FERROUS SULFATE
  6. FLUOXETINE [Concomitant]
     Active Substance: FLUOXETINE HYDROCHLORIDE
  7. MECLIZINE [Concomitant]
     Active Substance: MECLIZINE HYDROCHLORIDE
  8. PEPCID [Concomitant]
     Active Substance: FAMOTIDINE
  9. TIZANIDINE [Concomitant]
     Active Substance: TIZANIDINE

REACTIONS (10)
  - JC polyomavirus test positive [Unknown]
  - Vitamin B12 deficiency [Unknown]
  - Vitamin D deficiency [Unknown]
  - Hypochromic anaemia [Unknown]
  - Leukopenia [Unknown]
  - Mitral valve incompetence [Unknown]
  - Fibromyalgia [Unknown]
  - Vertigo [Unknown]
  - Hyperglycaemia [Unknown]
  - Osteopenia [Unknown]

NARRATIVE: CASE EVENT DATE: 20210111
